FAERS Safety Report 24779966 (Version 1)
Quarter: 2024Q4

REPORT INFORMATION
  Report Type: Spontaneous
  Country: NO (occurrence: NO)
  Receive Date: 20241226
  Receipt Date: 20241226
  Transmission Date: 20250115
  Serious: Yes (Other)
  Sender: NOVO NORDISK
  Company Number: None

PATIENT
  Age: 45 Year
  Sex: Female

DRUGS (1)
  1. WEGOVY [Suspect]
     Active Substance: SEMAGLUTIDE
     Indication: Overweight
     Dosage: 2.4 MG, QW
     Route: 058
     Dates: start: 20230901, end: 20241111

REACTIONS (4)
  - Optic ischaemic neuropathy [Not Recovered/Not Resolved]
  - Optic atrophy [Not Recovered/Not Resolved]
  - Visual field defect [Not Recovered/Not Resolved]
  - Pupillary reflex impaired [Not Recovered/Not Resolved]

NARRATIVE: CASE EVENT DATE: 20240101
